FAERS Safety Report 9280794 (Version 3)
Quarter: 2013Q2

REPORT INFORMATION
  Report Type: Spontaneous
  Country: NL (occurrence: NL)
  Receive Date: 20130509
  Receipt Date: 20130611
  Transmission Date: 20140414
  Serious: Yes (Hospitalization)
  Sender: FDA-Public Use
  Company Number: NL-PFIZER INC-2013138117

PATIENT
  Sex: Male

DRUGS (4)
  1. ATORVASTATIN PFIZER [Suspect]
     Dosage: 10 MG, UNK
     Route: 048
     Dates: start: 20070315
  2. ASCAL [Concomitant]
     Dosage: 1 DF, 1X/DAY
     Route: 048
     Dates: start: 20070213
  3. PANTOPRAZOL [Concomitant]
     Dosage: 1 DF, 1X/DAY
     Route: 048
     Dates: start: 20120803
  4. MICARDIS PLUS [Concomitant]
     Dosage: 80 MG/25 MG, 1X/DAY
     Route: 048
     Dates: start: 20090429

REACTIONS (3)
  - Abdominal discomfort [Unknown]
  - Epistaxis [Unknown]
  - Tinnitus [Unknown]
